FAERS Safety Report 5661068-8 (Version None)
Quarter: 2008Q1

REPORT INFORMATION
  Report Type: 
  Country: None (occurrence: None)
  Receive Date: 20080305
  Receipt Date: 20080225
  Transmission Date: 20080703
  Serious: Yes (Other)
  Sender: FDA-Public Use
  Company Number: 2008004766

PATIENT

DRUGS (1)
  1. BENADRYL [Suspect]
     Dosage: 2 TABLETS AT NIGHT, ORAL
     Route: 048

REACTIONS (1)
  - DRUG DEPENDENCE [None]
